FAERS Safety Report 22215081 (Version 1)
Quarter: 2023Q2

REPORT INFORMATION
  Report Type: Spontaneous
  Country: CA (occurrence: CA)
  Receive Date: 20230415
  Receipt Date: 20230415
  Transmission Date: 20230721
  Serious: Yes (Other)
  Sender: FDA-Public Use
  Company Number: None

PATIENT
  Age: 61 Year
  Sex: Female

DRUGS (16)
  1. METHOTREXATE SODIUM [Suspect]
     Active Substance: METHOTREXATE SODIUM
     Indication: Product used for unknown indication
     Dosage: 1 EVERY 1 WEEKS
  2. BIOTIN [Concomitant]
     Active Substance: BIOTIN
  3. CALCIUM CITRATE [Concomitant]
     Active Substance: CALCIUM CITRATE
  4. DILTIAZEM [Concomitant]
     Active Substance: DILTIAZEM
     Indication: Palpitations
  5. FISH OIL\TOCOPHEROL [Concomitant]
     Active Substance: FISH OIL\TOCOPHEROL
  6. HYALURONATE SODIUM [Concomitant]
     Active Substance: HYALURONATE SODIUM
  7. LEUCOVORIN CALCIUM [Concomitant]
     Active Substance: LEUCOVORIN CALCIUM
     Dosage: 1 EVERY 1 WEEKS
  8. NAPROXEN [Concomitant]
     Active Substance: NAPROXEN
     Dosage: 2 EVERY 1 DAYS
  9. OMEGA-3 ACIDS [Concomitant]
     Active Substance: OMEGA-3 FATTY ACIDS
     Dosage: 2 EVERY 1 DAYS
  10. PREDNISONE [Concomitant]
     Active Substance: PREDNISONE
  11. PROZAC [Concomitant]
     Active Substance: FLUOXETINE HYDROCHLORIDE
     Dosage: 1 EVERY 1 DAYS
  12. RABEPRAZOLE SODIUM [Concomitant]
     Active Substance: RABEPRAZOLE SODIUM
     Dosage: 1 EVERY 1 DAYS
  13. TYLENOL [Concomitant]
     Active Substance: ACETAMINOPHEN
     Dosage: AS REQUIRED
  14. TOFACITINIB [Concomitant]
     Active Substance: TOFACITINIB
     Indication: Rheumatoid arthritis
     Dosage: 2 EVERY 1 DAYS
     Route: 048
  15. METHOTREXATE SODIUM [Suspect]
     Active Substance: METHOTREXATE SODIUM
     Indication: Product used for unknown indication
  16. TOFACITINIB [Concomitant]
     Active Substance: TOFACITINIB
     Indication: Rheumatoid arthritis
     Dosage: TABLET (EXTENDED- RELEASE), 1 EVERY 1 DAYS, THERAPY DURATION: 273.0
     Route: 048

REACTIONS (8)
  - Alanine aminotransferase abnormal [Unknown]
  - Alopecia [Unknown]
  - Arthritis [Unknown]
  - Cardiac disorder [Unknown]
  - Contusion [Unknown]
  - COVID-19 [Unknown]
  - Drug ineffective [Unknown]
  - Fatigue [Unknown]
